FAERS Safety Report 20364350 (Version 1)
Quarter: 2022Q1

REPORT INFORMATION
  Report Type: Spontaneous
  Country: US (occurrence: None)
  Receive Date: 20220121
  Receipt Date: 20220121
  Transmission Date: 20220423
  Serious: No
  Sender: FDA-Public Use
  Company Number: None

PATIENT
  Sex: Male

DRUGS (1)
  1. OTEZLA [Suspect]
     Active Substance: APREMILAST
     Indication: Psoriasis
     Dosage: FREQUENCY : TWICE A DAY;?
     Route: 048
     Dates: start: 20210801, end: 20211226

REACTIONS (6)
  - Sinusitis [None]
  - Cellulitis [None]
  - Bronchitis [None]
  - Abscess limb [None]
  - Appendicitis perforated [None]
  - Sepsis [None]
